FAERS Safety Report 6533076-6 (Version None)
Quarter: 2010Q1

REPORT INFORMATION
  Report Type: 
  Country: None (occurrence: None)
  Receive Date: 20100111
  Receipt Date: 20100104
  Transmission Date: 20100710
  Serious: Yes (Hospitalization)
  Sender: FDA-Public Use
  Company Number: ES-ELI_LILLY_AND_COMPANY-ES201001000249

PATIENT
  Age: 83 Year
  Sex: Female

DRUGS (4)
  1. FORTEO [Suspect]
     Indication: OSTEOPOROSIS
     Dosage: 20 UG, UNKNOWN
     Route: 058
     Dates: start: 20091219, end: 20091220
  2. VENTOLIN [Concomitant]
     Indication: RESPIRATORY FAILURE
     Dosage: UNK, UNKNOWN
     Route: 065
  3. DACORTIN [Concomitant]
     Dosage: UNK, UNKNOWN
     Route: 065
  4. PREDNISONA [Concomitant]
     Dosage: UNK, UNKNOWN
     Route: 065

REACTIONS (2)
  - DIZZINESS [None]
  - TACHYCARDIA [None]
